FAERS Safety Report 20732134 (Version 3)
Quarter: 2023Q2

REPORT INFORMATION
  Report Type: Report from Study
  Country: KR (occurrence: KR)
  Receive Date: 20220420
  Receipt Date: 20230404
  Transmission Date: 20230722
  Serious: Yes (Hospitalization, Other)
  Sender: FDA-Public Use
  Company Number: KR-TAKEDA-2022TUS025840

PATIENT
  Age: 76 Year
  Sex: Female
  Weight: 76.2 kg

DRUGS (7)
  1. IXAZOMIB [Suspect]
     Active Substance: IXAZOMIB
     Indication: Plasma cell myeloma
     Dosage: 3 MILLIGRAM, QD
     Route: 048
     Dates: start: 20211102
  2. DEXAMETHASONE [Suspect]
     Active Substance: DEXAMETHASONE
     Indication: Plasma cell myeloma
     Dosage: 20 MILLIGRAM, QD
     Route: 048
     Dates: start: 20211102
  3. LENALIDOMIDE [Suspect]
     Active Substance: LENALIDOMIDE
     Indication: Plasma cell myeloma
     Dosage: 20 MILLIGRAM, QD
     Route: 048
     Dates: start: 20211102, end: 20211220
  4. LENALIDOMIDE [Suspect]
     Active Substance: LENALIDOMIDE
     Dosage: 15 MILLIGRAM, QD
     Route: 048
     Dates: start: 20220106, end: 20220126
  5. NEPHRO [Concomitant]
     Indication: Chronic kidney disease
     Dosage: UNK
     Route: 048
     Dates: end: 20220126
  6. HARNAL [Concomitant]
     Active Substance: TAMSULOSIN HYDROCHLORIDE
     Indication: Chronic kidney disease
     Dosage: 0.2 MILLIGRAM
     Route: 048
     Dates: end: 20220126
  7. AMLODIPINE CAMSYLATE [Concomitant]
     Active Substance: AMLODIPINE CAMSYLATE
     Indication: Pulmonary hypertension
     Dosage: 5 MILLIGRAM, QD
     Route: 048
     Dates: end: 20220126

REACTIONS (1)
  - Acute kidney injury [Recovered/Resolved]

NARRATIVE: CASE EVENT DATE: 20211228
